FAERS Safety Report 18142811 (Version 2)
Quarter: 2021Q2

REPORT INFORMATION
  Report Type: Other
  Country: DE (occurrence: DE)
  Receive Date: 20200813
  Receipt Date: 20210511
  Transmission Date: 20210717
  Serious: Yes (Hospitalization)
  Sender: FDA-Public Use
  Company Number: DE-CELLTRION INC.-2020DE025048

PATIENT

DRUGS (21)
  1. DENOSUMAB [Concomitant]
     Active Substance: DENOSUMAB
     Indication: OSTEOPOROSIS
  2. TORASEMID [Concomitant]
     Active Substance: TORSEMIDE
  3. AMITRIPTYLIN [Concomitant]
     Active Substance: AMITRIPTYLINE
  4. THIAMAZOL [Concomitant]
     Active Substance: METHIMAZOLE
  5. FOLIC ACID. [Concomitant]
     Active Substance: FOLIC ACID
  6. RITUXIMAB (UNKNOWN) [Suspect]
     Active Substance: RITUXIMAB
     Dosage: 1000 MG
     Route: 041
  7. PANTOPRAZOL [PANTOPRAZOLE] [Concomitant]
     Active Substance: PANTOPRAZOLE
  8. ATORVASTATIN [Concomitant]
     Active Substance: ATORVASTATIN
  9. RAMIPRIL. [Concomitant]
     Active Substance: RAMIPRIL
  10. BISOPROLOL [Concomitant]
     Active Substance: BISOPROLOL
  11. LEVETIRACETAM. [Concomitant]
     Active Substance: LEVETIRACETAM
  12. MAGNESIUM [Concomitant]
     Active Substance: MAGNESIUM
  13. PREGABALIN. [Concomitant]
     Active Substance: PREGABALIN
  14. RITUXIMAB (UNKNOWN) [Suspect]
     Active Substance: RITUXIMAB
     Indication: RHEUMATOID ARTHRITIS
     Dosage: 1000 MG; DATE RECEIVED: 06 SEP 2020
     Route: 041
  15. COLECALCIFEROL [Concomitant]
     Active Substance: CHOLECALCIFEROL
  16. BUPRENORPHIN [Concomitant]
     Active Substance: BUPRENORPHINE
  17. PREDNISOLON [PREDNISOLONE] [Concomitant]
     Active Substance: PREDNISOLONE
  18. ISOSORBIDE. [Concomitant]
     Active Substance: ISOSORBIDE
  19. CLOPIDOGREL [Concomitant]
     Active Substance: CLOPIDOGREL BISULFATE
  20. METHOTREXATE. [Suspect]
     Active Substance: METHOTREXATE
     Indication: RHEUMATOID ARTHRITIS
     Route: 065
  21. SIMVASTATIN. [Concomitant]
     Active Substance: SIMVASTATIN

REACTIONS (5)
  - Gastroenteritis [Recovered/Resolved]
  - Escherichia urinary tract infection [Recovered/Resolved]
  - Dysuria [Recovered/Resolved]
  - Cystitis [Recovered/Resolved]
  - Acute kidney injury [Recovered/Resolved]

NARRATIVE: CASE EVENT DATE: 201812
